FAERS Safety Report 20174668 (Version 1)
Quarter: 2021Q4

REPORT INFORMATION
  Report Type: Spontaneous
  Country: PT (occurrence: PT)
  Receive Date: 20211213
  Receipt Date: 20211213
  Transmission Date: 20220303
  Serious: Yes (Life-Threatening, Hospitalization, Other)
  Sender: FDA-Public Use
  Company Number: PT-MLMSERVICE-2021112532368501

PATIENT
  Age: 42 Year
  Sex: Female

DRUGS (3)
  1. MYCOPHENOLIC ACID [Suspect]
     Active Substance: MYCOPHENOLIC ACID
     Indication: Immunosuppressant drug therapy
  2. TACROLIMUS [Suspect]
     Active Substance: TACROLIMUS
     Indication: Immunosuppressant drug therapy
  3. ERYTHROPOIETIN [Concomitant]
     Active Substance: ERYTHROPOIETIN

REACTIONS (2)
  - Disease recurrence [Recovering/Resolving]
  - Haemophagocytic lymphohistiocytosis [Recovering/Resolving]
